FAERS Safety Report 18049246 (Version 1)
Quarter: 2020Q3

REPORT INFORMATION
  Report Type: Spontaneous
  Country: US (occurrence: US)
  Receive Date: 20200721
  Receipt Date: 20200721
  Transmission Date: 20201103
  Serious: No
  Sender: FDA-Public Use
  Company Number: US-UNITED THERAPEUTICS-UNT-2020-010552

PATIENT
  Sex: Female
  Weight: 58.96 kg

DRUGS (4)
  1. ORENITRAM [Suspect]
     Active Substance: TREPROSTINIL
     Dosage: 5 MG, TID
     Route: 048
  2. ORENITRAM [Suspect]
     Active Substance: TREPROSTINIL
     Indication: PULMONARY ARTERIAL HYPERTENSION
     Dosage: UNK
     Route: 048
     Dates: start: 20181113
  3. ORENITRAM [Suspect]
     Active Substance: TREPROSTINIL
     Indication: PULMONARY ARTERIAL HYPERTENSION
     Route: 048
  4. COUMADIN [Concomitant]
     Active Substance: WARFARIN SODIUM
     Indication: PRODUCT USED FOR UNKNOWN INDICATION
     Dosage: UNK
     Route: 065

REACTIONS (11)
  - Dysphagia [Not Recovered/Not Resolved]
  - Product use issue [Unknown]
  - Abdominal pain [Unknown]
  - Chest discomfort [Unknown]
  - Aspiration [Unknown]
  - Retching [Unknown]
  - Pulmonary arterial pressure increased [Unknown]
  - Diarrhoea [Unknown]
  - Oedema peripheral [Unknown]
  - Head discomfort [Unknown]
  - Flushing [Unknown]
